FAERS Safety Report 9821846 (Version 1)
Quarter: 2014Q1

REPORT INFORMATION
  Report Type: Spontaneous
  Country: US (occurrence: None)
  Receive Date: 20140114
  Receipt Date: 20140114
  Transmission Date: 20141002
  Serious: Yes (Other)
  Sender: FDA-Public Use
  Company Number: 14AE001

PATIENT
  Age: 79 Year
  Sex: Male

DRUGS (1)
  1. EQUATE DOXYLAMINE SUCCINATE 25MG TABLETS [Suspect]
     Indication: SLEEP DISORDER
     Dosage: 1 PER NIGHT /BY MOUTH
     Route: 048
     Dates: start: 20131219, end: 20140102

REACTIONS (1)
  - Sleep talking [None]
